FAERS Safety Report 21811975 (Version 2)
Quarter: 2023Q1

REPORT INFORMATION
  Report Type: Spontaneous
  Country: US (occurrence: US)
  Receive Date: 20230103
  Receipt Date: 20230126
  Transmission Date: 20230418
  Serious: Yes (Other)
  Sender: FDA-Public Use
  Company Number: US-BAYER-2023P000322

PATIENT
  Age: 32 Year
  Sex: Male

DRUGS (1)
  1. KOVALTRY [Suspect]
     Active Substance: ANTIHEMOPHILIC FACTOR, HUMAN RECOMBINANT
     Dosage: 1724 TO 2155 UNITS OR 3448 TO 4310 UNITS

REACTIONS (1)
  - Ankle operation [None]

NARRATIVE: CASE EVENT DATE: 20221227
